FAERS Safety Report 5727584-5 (Version None)
Quarter: 2008Q2

REPORT INFORMATION
  Report Type: 
  Country: None (occurrence: None)
  Receive Date: 20080505
  Receipt Date: 20080428
  Transmission Date: 20081010
  Serious: Yes (Hospitalization, Other)
  Sender: FDA-Public Use
  Company Number: US-ASTRAZENECA-2008UW08566

PATIENT
  Age: 47 Year
  Sex: Female
  Weight: 105.2 kg

DRUGS (6)
  1. CRESTOR [Suspect]
     Indication: BLOOD CHOLESTEROL
     Route: 048
     Dates: start: 20070101
  2. CRESTOR [Suspect]
     Route: 048
     Dates: start: 20071101, end: 20080401
  3. CRESTOR [Suspect]
     Route: 048
     Dates: start: 20080401, end: 20080401
  4. METFORMIN HCL [Concomitant]
  5. ZOLOFT [Concomitant]
  6. LORCET-HD [Concomitant]

REACTIONS (11)
  - ABDOMINAL PAIN [None]
  - CEREBRAL ARTERY OCCLUSION [None]
  - DYSPNOEA [None]
  - GAIT DISTURBANCE [None]
  - HEADACHE [None]
  - HEART RATE IRREGULAR [None]
  - MUSCULAR WEAKNESS [None]
  - MYALGIA [None]
  - NAUSEA [None]
  - PARAESTHESIA [None]
  - TREMOR [None]
